FAERS Safety Report 15825707 (Version 1)
Quarter: 2019Q1

REPORT INFORMATION
  Report Type: Spontaneous
  Country: NL (occurrence: NL)
  Receive Date: 20190115
  Receipt Date: 20190115
  Transmission Date: 20190417
  Serious: Yes (Other)
  Sender: FDA-Public Use
  Company Number: NL-JNJFOC-20190109897

PATIENT
  Age: 37 Year
  Sex: Female

DRUGS (6)
  1. CYCLOPHOSPHAMIDE. [Suspect]
     Active Substance: CYCLOPHOSPHAMIDE
     Indication: MALIGNANT CRANIAL NERVE NEOPLASM
     Route: 065
     Dates: start: 2018
  2. CYCLOPHOSPHAMIDE. [Suspect]
     Active Substance: CYCLOPHOSPHAMIDE
     Indication: MALIGNANT CRANIAL NERVE NEOPLASM
     Route: 065
     Dates: start: 2016, end: 2016
  3. DOXORUBICIN HYDROCHLORIDE. [Suspect]
     Active Substance: DOXORUBICIN HYDROCHLORIDE
     Indication: MALIGNANT CRANIAL NERVE NEOPLASM
     Route: 065
     Dates: start: 2016, end: 2016
  4. CISPLATIN. [Suspect]
     Active Substance: CISPLATIN
     Indication: MALIGNANT CRANIAL NERVE NEOPLASM
     Route: 065
     Dates: start: 2016, end: 2016
  5. CISPLATIN. [Suspect]
     Active Substance: CISPLATIN
     Indication: MALIGNANT CRANIAL NERVE NEOPLASM
     Route: 065
     Dates: start: 2018
  6. DOXORUBICIN HYDROCHLORIDE. [Suspect]
     Active Substance: DOXORUBICIN HYDROCHLORIDE
     Indication: MALIGNANT CRANIAL NERVE NEOPLASM
     Route: 065
     Dates: start: 2018

REACTIONS (5)
  - Brain neoplasm [Unknown]
  - Malignant cranial nerve neoplasm [Unknown]
  - Malignant neoplasm progression [Unknown]
  - Off label use [Unknown]
  - Product use in unapproved indication [Unknown]

NARRATIVE: CASE EVENT DATE: 2016
